FAERS Safety Report 10182880 (Version 2)
Quarter: 2014Q2

REPORT INFORMATION
  Report Type: Spontaneous
  Country: US (occurrence: US)
  Receive Date: 20140520
  Receipt Date: 20140619
  Transmission Date: 20141212
  Serious: No
  Sender: FDA-Public Use
  Company Number: US-009507513-1405USA008222

PATIENT
  Age: 74 Year
  Sex: Female

DRUGS (6)
  1. OXYTROL FOR WOMEN [Suspect]
     Indication: INCONTINENCE
     Dosage: 1 DF, Q4D
     Route: 062
  2. METFORMIN [Concomitant]
     Indication: DIABETES MELLITUS
     Dosage: UNK, UNKNOWN
  3. LISINOPRIL [Concomitant]
     Indication: HYPERTENSION
     Dosage: UNK, UNKNOWN
  4. SIMVASTATIN [Concomitant]
     Indication: BLOOD CHOLESTEROL
     Dosage: UNK, UNKNOWN
  5. LEXAPRO [Concomitant]
     Indication: ANXIETY
     Dosage: UNK, UNKNOWN
  6. SYNTHROID [Concomitant]
     Indication: HYPOTHYROIDISM
     Dosage: UNK, UNKNOWN

REACTIONS (6)
  - Application site inflammation [Unknown]
  - Application site rash [Recovering/Resolving]
  - Application site erythema [Unknown]
  - Application site pruritus [Unknown]
  - Drug administered at inappropriate site [Unknown]
  - Off label use [Unknown]
